APPROVED DRUG PRODUCT: OPSUMIT
Active Ingredient: MACITENTAN
Strength: 10MG
Dosage Form/Route: TABLET;ORAL
Application: N204410 | Product #001 | TE Code: AB
Applicant: ACTELION PHARMACEUTICALS US INC
Approved: Oct 18, 2013 | RLD: Yes | RS: Yes | Type: RX

PATENTS:
Patent 9265762 | Expires: May 29, 2027
Patent 10946015 | Expires: Sep 11, 2026
Patent 8367685 | Expires: Oct 4, 2028
Patent 7094781 | Expires: Dec 5, 2025
Patent 8268847*PED | Expires: Oct 18, 2029
Patent 7094781*PED | Expires: Jun 5, 2026
Patent 8367685*PED | Expires: Apr 4, 2029
Patent 9265762*PED | Expires: Nov 29, 2027
Patent 10946015*PED | Expires: Mar 11, 2027
Patent 8268847 | Expires: Apr 18, 2029

EXCLUSIVITY:
Code: M-187 | Date: Feb 28, 2028
Code: PED | Date: Aug 28, 2028